FAERS Safety Report 4537497-2 (Version None)
Quarter: 2005Q1

REPORT INFORMATION
  Report Type: 
  Country: None (occurrence: None)
  Receive Date: 20041216
  Receipt Date: 20040610
  Transmission Date: 20050727
  Serious: Yes (Hospitalization)
  Sender: FDA-Public Use
  Company Number: HQWYE440214JUN04

PATIENT
  Age: 55 Year
  Sex: Female

DRUGS (2)
  1. EFFEXOR XR [Suspect]
     Indication: DEPRESSION
     Dosage: ORAL
     Route: 048
  2. ALPRAZOLAM [Concomitant]

REACTIONS (4)
  - ECCHYMOSIS [None]
  - FEELING ABNORMAL [None]
  - PLATELET COUNT DECREASED [None]
  - SKIN STRIAE [None]
